FAERS Safety Report 25741487 (Version 1)
Quarter: 2025Q3

REPORT INFORMATION
  Report Type: Report from Study
  Country: US (occurrence: US)
  Receive Date: 20250829
  Receipt Date: 20250829
  Transmission Date: 20251020
  Serious: Yes (Death, Other)
  Sender: DIFGEN PHARMACEUTICALS LLC
  Company Number: US-Difgen-012123

PATIENT
  Age: 43 Year
  Sex: Female

DRUGS (3)
  1. COCAINE [Suspect]
     Active Substance: COCAINE
     Indication: Product used for unknown indication
     Route: 065
  2. DESPROPIONYLFENTANYL [Suspect]
     Active Substance: DESPROPIONYLFENTANYL
     Indication: Product used for unknown indication
     Route: 065
  3. FENTANYL [Suspect]
     Active Substance: FENTANYL
     Indication: Product used for unknown indication
     Route: 065

REACTIONS (5)
  - Arteriosclerosis coronary artery [Fatal]
  - Overdose [Fatal]
  - Toxicity to various agents [Fatal]
  - Pulmonary congestion [Fatal]
  - Pulmonary oedema [Fatal]
